FAERS Safety Report 10642891 (Version 1)
Quarter: 2014Q4

REPORT INFORMATION
  Report Type: Spontaneous
  Country: US (occurrence: US)
  Receive Date: 20141210
  Receipt Date: 20141210
  Transmission Date: 20150529
  Serious: No
  Sender: FDA-Public Use
  Company Number: US-PFIZER INC-2014333066

PATIENT
  Age: 59 Year
  Sex: Male

DRUGS (4)
  1. SUTENT [Suspect]
     Active Substance: SUNITINIB MALATE
     Indication: METASTATIC RENAL CELL CARCINOMA
     Dosage: UNK
  2. SUTENT [Suspect]
     Active Substance: SUNITINIB MALATE
     Dosage: 37.5 MG, UNK
  3. HYDREA [Suspect]
     Active Substance: HYDROXYUREA
     Dosage: 1 G, DAILY
  4. HYDREA [Suspect]
     Active Substance: HYDROXYUREA
     Indication: METASTATIC RENAL CELL CARCINOMA
     Dosage: 1 G DAILY FOR 5 DAYS AND 1.5 G FOR REST OF DAYS IN A WEEK

REACTIONS (4)
  - Stomatitis [Recovered/Resolved]
  - Lethargy [Unknown]
  - Disease progression [Unknown]
  - Metastatic renal cell carcinoma [Unknown]
